FAERS Safety Report 25996169 (Version 1)
Quarter: 2025Q4

REPORT INFORMATION
  Report Type: Report from Study
  Country: US (occurrence: US)
  Receive Date: 20251104
  Receipt Date: 20251104
  Transmission Date: 20260117
  Serious: Yes (Other)
  Sender: OTSUKA
  Company Number: US-MMM-Otsuka-WBZLXKON

PATIENT
  Sex: Female

DRUGS (1)
  1. TOLVAPTAN [Suspect]
     Active Substance: TOLVAPTAN
     Indication: Congenital cystic kidney disease
     Dosage: 15 MG, BID (UPON WAKING THEN 8 H LATER)

REACTIONS (5)
  - Renal failure [Unknown]
  - Gastrointestinal disorder [Unknown]
  - Pain [Recovered/Resolved]
  - Blood urine present [Unknown]
  - Diarrhoea [Unknown]
